FAERS Safety Report 20879573 (Version 2)
Quarter: 2022Q2

REPORT INFORMATION
  Report Type: Spontaneous
  Country: CN (occurrence: CN)
  Receive Date: 20220526
  Receipt Date: 20220609
  Transmission Date: 20220721
  Serious: Yes (Other)
  Sender: FDA-Public Use
  Company Number: CN-PFIZER INC-202200756997

PATIENT
  Age: 57 Year
  Sex: Male
  Weight: 56 kg

DRUGS (4)
  1. ATORVASTATIN CALCIUM [Suspect]
     Active Substance: ATORVASTATIN CALCIUM
     Indication: Hyperlipidaemia
     Dosage: 20.000 MG, 1X/DAY
     Route: 048
     Dates: start: 20220504, end: 20220507
  2. TICAGRELOR [Concomitant]
     Active Substance: TICAGRELOR
     Indication: Acute coronary syndrome
     Dosage: 90.000 MG, 2X/DAY
     Route: 048
     Dates: start: 20220504, end: 20220507
  3. METOPROLOL SUCCINATE [Concomitant]
     Active Substance: METOPROLOL SUCCINATE
     Indication: Acute coronary syndrome
     Dosage: 47.500 MG, 1X/DAY
     Route: 048
     Dates: start: 20220504, end: 20220507
  4. ASPIRIN [Concomitant]
     Active Substance: ASPIRIN
     Indication: Acute coronary syndrome
     Dosage: 100.000 MG, 1X/DAY
     Route: 048
     Dates: start: 20220504, end: 20220507

REACTIONS (1)
  - Blood creatine phosphokinase increased [Recovering/Resolving]

NARRATIVE: CASE EVENT DATE: 20220505
